FAERS Safety Report 16344009 (Version 1)
Quarter: 2019Q2

REPORT INFORMATION
  Report Type: Spontaneous
  Country: US (occurrence: US)
  Receive Date: 20190522
  Receipt Date: 20190522
  Transmission Date: 20190711
  Serious: No
  Sender: FDA-Public Use
  Company Number: US-AMAG PHARMACEUTICALS, INC.-AMAG201900695

PATIENT
  Age: 36 Year
  Sex: Female
  Weight: 68.48 kg

DRUGS (2)
  1. MAKENA [Suspect]
     Active Substance: HYDROXYPROGESTERONE CAPROATE
     Indication: PREMATURE DELIVERY
     Dosage: 250 MG/ML, WEEKLY
     Route: 058
     Dates: start: 20181116, end: 20181221
  2. MAKENA [Suspect]
     Active Substance: HYDROXYPROGESTERONE CAPROATE
     Dosage: 250 MG/ML, WEEKLY
     Route: 030

REACTIONS (3)
  - Inappropriate schedule of product administration [Unknown]
  - Pruritus generalised [Not Recovered/Not Resolved]
  - Pruritus [Not Recovered/Not Resolved]

NARRATIVE: CASE EVENT DATE: 20181116
